FAERS Safety Report 8343845 (Version 5)
Quarter: 2012Q4

REPORT INFORMATION
  Report Type: 
  Country: US (occurrence: US)
  Receive Date: 20120119
  Receipt Date: 20121102
  Transmission Date: 20130627
  Serious: Yes (Death, Hospitalization, Other)
  Sender: FDA-Public Use
  Company Number: US-MSD-1201USA02283

PATIENT

DRUGS (11)
  1. FOSAMAX [Suspect]
     Indication: OSTEOPENIA
     Dosage: 5 mg, UNK
     Route: 048
     Dates: start: 199908, end: 200002
  2. FOSAMAX [Suspect]
     Indication: OSTEOPOROSIS
     Dosage: 10 mg, qd
     Route: 048
     Dates: start: 200002, end: 200210
  3. FOSAMAX [Suspect]
     Dosage: 70 mg, UNK
     Route: 048
     Dates: start: 200211, end: 200802
  4. ALENDRONATE SODIUM [Suspect]
     Indication: OSTEOPENIA
     Dosage: 70 mg, UNK
     Route: 048
     Dates: start: 200802, end: 201006
  5. ALENDRONATE SODIUM [Suspect]
     Indication: OSTEOPOROSIS
  6. FOSAMAX [Suspect]
     Indication: OSTEOPENIA
     Dosage: 70 mg
     Dates: start: 20090120, end: 201006
  7. FOSAMAX [Suspect]
     Indication: OSTEOPOROSIS
  8. ALENDRONATE SODIUM [Suspect]
     Indication: OSTEOPENIA
     Dosage: 70 mg
     Dates: start: 20100331, end: 201004
  9. ALENDRONATE SODIUM [Suspect]
     Indication: OSTEOPOROSIS
  10. ALENDRONATE SODIUM [Suspect]
     Indication: OSTEOPENIA
     Dosage: 70 mg
     Dates: start: 20100621, end: 201011
  11. ALENDRONATE SODIUM [Suspect]
     Indication: OSTEOPOROSIS

REACTIONS (58)
  - Cardio-respiratory arrest [Fatal]
  - Vascular dementia [Fatal]
  - Cerebrovascular accident [Fatal]
  - Femur fracture [Unknown]
  - Cerebrovascular accident [Unknown]
  - Confusional state [Unknown]
  - Osteonecrosis of jaw [Unknown]
  - Low turnover osteopathy [Unknown]
  - Tooth disorder [Unknown]
  - Exostosis of jaw [Unknown]
  - Gingival bleeding [Unknown]
  - Anxiety [Unknown]
  - Depression [Unknown]
  - Radius fracture [Unknown]
  - Arthropod bite [Unknown]
  - Altered state of consciousness [Unknown]
  - Dehydration [Unknown]
  - Tooth disorder [Unknown]
  - Hypertension [Unknown]
  - Muscle strain [Unknown]
  - Drug hypersensitivity [Unknown]
  - Constipation [Unknown]
  - Pyelonephritis [Unknown]
  - Insomnia [Not Recovered/Not Resolved]
  - Fatigue [Unknown]
  - Asthenia [Unknown]
  - Complex partial seizures [Unknown]
  - Hyponatraemia [Not Recovered/Not Resolved]
  - Vascular dementia [Unknown]
  - Leukocytosis [Unknown]
  - Alcohol abuse [Unknown]
  - Hyperlipidaemia [Unknown]
  - Diabetes mellitus [Unknown]
  - Transient ischaemic attack [Unknown]
  - Hypercholesterolaemia [Unknown]
  - Nephrolithiasis [Unknown]
  - Appendix disorder [Unknown]
  - Headache [Unknown]
  - Occipital neuralgia [Unknown]
  - Drug hypersensitivity [Unknown]
  - Hyperkalaemia [Unknown]
  - Malaise [Unknown]
  - Fall [Unknown]
  - Contusion [Unknown]
  - Cerebral haemorrhage [Unknown]
  - Hyperglycaemia [Unknown]
  - Paranoia [Unknown]
  - Diarrhoea [Unknown]
  - Dementia [Unknown]
  - Decreased appetite [Unknown]
  - Alopecia [Unknown]
  - Conjunctivitis [Unknown]
  - Micturition urgency [Unknown]
  - Temperature intolerance [Unknown]
  - Dry mouth [Unknown]
  - Dental caries [Unknown]
  - Photopsia [Unknown]
  - Tooth extraction [Unknown]
